FAERS Safety Report 24450776 (Version 1)
Quarter: 2024Q4

REPORT INFORMATION
  Report Type: Spontaneous
  Country: FR (occurrence: FR)
  Receive Date: 20241017
  Receipt Date: 20241017
  Transmission Date: 20250115
  Serious: Yes (Hospitalization)
  Sender: ROCHE
  Company Number: None

PATIENT
  Age: 71 Year
  Sex: Male
  Weight: 89 kg

DRUGS (29)
  1. BACTRIM [Suspect]
     Active Substance: SULFAMETHOXAZOLE\TRIMETHOPRIM
     Indication: Product used for unknown indication
     Dosage: 1X3/WEEK
     Route: 065
  2. VALGANCICLOVIR [Suspect]
     Active Substance: VALGANCICLOVIR
     Indication: Product used for unknown indication
     Dosage: 450 MGX2/WEEK, BID
     Route: 065
     Dates: end: 20240702
  3. FILGRASTIM [Suspect]
     Active Substance: FILGRASTIM
     Indication: Neutropenia
     Dosage: 30 MU/0.5 ML, SOLUTION FOR INJECTION OR INFUSION IN PRE-FILLED SYRINGE
     Route: 058
     Dates: start: 20240709, end: 20240709
  4. NULOJIX [Suspect]
     Active Substance: BELATACEPT
     Indication: Renal transplant
     Dosage: 5 INJECTIONS, INTRAVENOUS DRIP
     Route: 042
     Dates: start: 20240522, end: 20240716
  5. NEORAL [Suspect]
     Active Substance: CYCLOSPORINE
     Indication: Product used for unknown indication
     Dosage: BID
     Route: 065
     Dates: end: 20240605
  6. AMLODIPINE [Suspect]
     Active Substance: AMLODIPINE BESYLATE
     Indication: Product used for unknown indication
     Route: 065
  7. SODIUM BICARBONATE [Suspect]
     Active Substance: SODIUM BICARBONATE
     Indication: Product used for unknown indication
     Dosage: 2X4/DAY
     Route: 065
  8. PREDNISONE [Suspect]
     Active Substance: PREDNISONE
     Indication: Product used for unknown indication
     Dosage: LONG TERM
     Route: 048
     Dates: start: 20240601
  9. PREDNISONE [Suspect]
     Active Substance: PREDNISONE
     Route: 048
     Dates: start: 20240508, end: 20240601
  10. FOLIC ACID [Suspect]
     Active Substance: FOLIC ACID
     Indication: Product used for unknown indication
     Route: 065
  11. KARDEGIC [Concomitant]
     Active Substance: ASPIRIN DL-LYSINE
     Dosage: 1 SACHET AT LUNCHTIME
     Route: 065
  12. CHOLECALCIFEROL [Concomitant]
     Active Substance: CHOLECALCIFEROL
     Dosage: 1 AMPOULE ON THE FIRST OF THE MONTH
     Route: 065
  13. LACTULOSE [Concomitant]
     Active Substance: LACTULOSE
     Dosage: 1 SACHET 3 X A DAY AS NEEDED
     Route: 065
  14. BISOPROLOL [Concomitant]
     Active Substance: BISOPROLOL\BISOPROLOL FUMARATE
     Dosage: IN THE MORNING
     Route: 065
  15. CALCIUM CARBONATE\CHOLECALCIFEROL [Concomitant]
     Active Substance: CALCIUM CARBONATE\CHOLECALCIFEROL
     Dosage: 500 MG/400 IU: 1 SACHET MORNING, NOON AND EVENING
     Route: 065
  16. PANTOPRAZOLE [Concomitant]
     Active Substance: PANTOPRAZOLE
     Dosage: IN THE EVENING
     Route: 065
  17. EZETIMIBE [Concomitant]
     Active Substance: EZETIMIBE
     Dosage: IN THE EVENING
     Route: 065
  18. ZOPICLONE [Concomitant]
     Active Substance: ZOPICLONE
     Dosage: AT NIGHT
     Route: 065
  19. SYMBICORT [Concomitant]
     Active Substance: BUDESONIDE\FORMOTEROL FUMARATE DIHYDRATE
     Dosage: ONE REMOVAL IN THE MORNING AND EVENING
     Route: 065
  20. ROSUVASTATIN [Concomitant]
     Active Substance: ROSUVASTATIN
     Dosage: IN THE EVENING
     Route: 065
  21. ACETAMINOPHEN [Concomitant]
     Active Substance: ACETAMINOPHEN
     Dosage: 3 X DAILY AS NEEDED
     Route: 065
  22. FEXOFENADINE [Concomitant]
     Active Substance: FEXOFENADINE HYDROCHLORIDE
     Dosage: IN THE EVENING
     Route: 065
  23. CINACALCET [Concomitant]
     Active Substance: CINACALCET
     Dosage: IN THE EVENING
     Route: 065
  24. CALCIUM POLYSTYRENE SULFONATE [Concomitant]
     Active Substance: CALCIUM POLYSTYRENE SULFONATE
     Dosage: ONE MEASURING SPOON AT LUNCHTIME
     Route: 065
  25. SEVELAMER [Concomitant]
     Active Substance: SEVELAMER
     Dosage: TID,  MORNING, NOON AND EVENING
     Route: 065
  26. TRAMADOL [Concomitant]
     Active Substance: TRAMADOL
     Dosage: AS NEEDED
     Route: 065
  27. SIMULECT [Concomitant]
     Active Substance: BASILIXIMAB
     Dosage: D0 D4
     Route: 065
  28. CELLCEPT [Concomitant]
     Active Substance: MYCOPHENOLATE MOFETIL
     Indication: Immunosuppression
     Dosage: 1G BEFORE SURGERY. THEN 1G 8H, 20H.
     Route: 065
  29. CYCLOSPORINE [Concomitant]
     Active Substance: CYCLOSPORINE
     Indication: Immunosuppression
     Dosage: 170MG 8H 20H (AGE } 70 YEARS AND HCV SEROLOGY POSITIVE), WITH EARLY SWITCH TO BELATACEPT J1 ON 22/05
     Route: 065
     Dates: end: 20240605

REACTIONS (1)
  - Renal vein thrombosis [Not Recovered/Not Resolved]

NARRATIVE: CASE EVENT DATE: 20240717
